FAERS Safety Report 6196998-4 (Version None)
Quarter: 2009Q2

REPORT INFORMATION
  Report Type: 
  Country: None (occurrence: None)
  Receive Date: 20090520
  Receipt Date: 20090508
  Transmission Date: 20091009
  Serious: Yes (Hospitalization)
  Sender: FDA-Public Use
  Company Number: JP-PFIZER INC-2009213316

PATIENT
  Age: 77 Year

DRUGS (4)
  1. CHAMPIX [Suspect]
     Indication: SMOKING CESSATION THERAPY
     Dosage: UNK
     Route: 048
     Dates: start: 20090309
  2. ALESION [Concomitant]
     Dosage: UNK
     Route: 048
  3. TAMSULOSIN HYDROCHLORIDE [Concomitant]
     Dosage: UNK
     Route: 048
  4. MAGNESIUM OXIDE [Concomitant]
     Dosage: UNK
     Route: 048

REACTIONS (3)
  - NEUTROPHIL COUNT DECREASED [None]
  - PNEUMONIA [None]
  - WHITE BLOOD CELL COUNT DECREASED [None]
